FAERS Safety Report 9587833 (Version 1)
Quarter: 2013Q4

REPORT INFORMATION
  Report Type: Report from Study
  Country: ES (occurrence: ES)
  Receive Date: 20131003
  Receipt Date: 20131003
  Transmission Date: 20140711
  Serious: Yes (Death)
  Sender: FDA-Public Use
  Company Number: ES-BAXTER-2013BAX038807

PATIENT
  Sex: 0

DRUGS (4)
  1. GENOXAL 1 G INYECTABLE [Suspect]
     Indication: BREAST CANCER
     Route: 065
  2. FLUOROURACIL [Suspect]
     Indication: BREAST CANCER
     Route: 065
  3. DOXORUBICIN [Suspect]
     Indication: BREAST CANCER
     Route: 065
  4. PACLITAXEL [Suspect]
     Indication: BREAST CANCER
     Route: 065

REACTIONS (1)
  - Pulmonary embolism [Fatal]
